FAERS Safety Report 5092833-6 (Version None)
Quarter: 2006Q3

REPORT INFORMATION
  Report Type: 
  Country: None (occurrence: None)
  Receive Date: 20060727
  Receipt Date: 20060423
  Transmission Date: 20061208
  Serious: Yes (Other)
  Sender: FDA-Public Use
  Company Number: 2006057632

PATIENT
  Age: 59 Year
  Sex: Female
  Weight: 102.0593 kg

DRUGS (17)
  1. LYRICA [Suspect]
     Indication: NEURALGIA
     Dosage: 225 MG (75 MG, 3 IN 1 D), ORAL
     Route: 048
     Dates: start: 20060215, end: 20060422
  2. K-DUR 10 [Concomitant]
  3. LASIX [Concomitant]
  4. CENTRUM SILVER (ASCORBIC ACID, CALCIUM, MINERALS NOS, RETINOL, TOCOPHE [Concomitant]
  5. CALCIUM (CALCIUM) [Concomitant]
  6. TOPAMAX [Concomitant]
  7. CELEBREX [Concomitant]
  8. LESCOL [Concomitant]
  9. ZETIA [Concomitant]
  10. NIASPAN [Concomitant]
  11. ATACAND [Concomitant]
  12. NORVASC [Concomitant]
  13. TOPROL-XL [Concomitant]
  14. PROZAC [Concomitant]
  15. ELAVIL [Concomitant]
  16. PREMPRO [Concomitant]
  17. FLEXERIL [Concomitant]

REACTIONS (9)
  - AMNESIA [None]
  - FATIGUE [None]
  - FEELING DRUNK [None]
  - HYPOAESTHESIA [None]
  - INITIAL INSOMNIA [None]
  - MOOD ALTERED [None]
  - SOMNOLENCE [None]
  - TREMOR [None]
  - WALKING DISABILITY [None]
